FAERS Safety Report 8111687-4 (Version None)
Quarter: 2011Q4

REPORT INFORMATION
  Report Type: 
  Country: None (occurrence: None)
  Receive Date: 20111223
  Receipt Date: 20101104
  Transmission Date: 20120403
  Serious: Yes (Hospitalization, Other)
  Sender: FDA-Public Use
  Company Number: PHHY2010US75669

PATIENT

DRUGS (1)
  1. CLOZARIL [Suspect]
     Dosage: 100 MG

REACTIONS (1)
  - DEPRESSION [None]
